FAERS Safety Report 5140670-6 (Version None)
Quarter: 2006Q4

REPORT INFORMATION
  Report Type: 
  Country: None (occurrence: None)
  Receive Date: 20061025
  Receipt Date: 20061010
  Transmission Date: 20070319
  Serious: Yes (Other)
  Sender: FDA-Public Use
  Company Number: 8019556

PATIENT
  Age: 45 Year
  Sex: Male

DRUGS (2)
  1. KEPPRA [Suspect]
     Indication: EPILEPSY
     Dates: start: 20060701
  2. KEPPRA [Suspect]
     Indication: EPILEPSY
     Dosage: 1500 MG/D
     Dates: start: 20060901

REACTIONS (1)
  - THROMBOCYTOPENIA [None]
